FAERS Safety Report 24005047 (Version 2)
Quarter: 2024Q3

REPORT INFORMATION
  Report Type: Spontaneous
  Country: US (occurrence: US)
  Receive Date: 20240624
  Receipt Date: 20240723
  Transmission Date: 20241016
  Serious: Yes (Other)
  Sender: MERCK
  Company Number: US-009507513-2406GRC006889

PATIENT
  Age: 65 Year
  Sex: Male

DRUGS (2)
  1. CUBICIN [Suspect]
     Active Substance: DAPTOMYCIN
     Indication: Device related infection
     Dosage: UNK
     Route: 042
  2. CUBICIN [Suspect]
     Active Substance: DAPTOMYCIN
     Indication: Pseudomonas infection

REACTIONS (3)
  - Acute respiratory failure [Recovered/Resolved]
  - Eosinophilic pneumonia [Recovered/Resolved]
  - Product use in unapproved indication [Unknown]
